FAERS Safety Report 6189337-6 (Version None)
Quarter: 2009Q2

REPORT INFORMATION
  Report Type: 
  Country: None (occurrence: None)
  Receive Date: 20090512
  Receipt Date: 20090423
  Transmission Date: 20091009
  Serious: Yes (Hospitalization, Other)
  Sender: FDA-Public Use
  Company Number: ADE #09-150DPR

PATIENT
  Age: 68 Year
  Sex: Male

DRUGS (1)
  1. DIGOXIN [Suspect]
     Indication: CARDIAC DISORDER
     Dosage: 15-20 YEARS AGO

REACTIONS (6)
  - CARDIAC DISORDER [None]
  - CARDIAC PACEMAKER INSERTION [None]
  - DIZZINESS [None]
  - EJECTION FRACTION DECREASED [None]
  - HYPOTENSION [None]
  - MYOCARDIAL INFARCTION [None]
